FAERS Safety Report 23543572 (Version 3)
Quarter: 2024Q1

REPORT INFORMATION
  Report Type: Spontaneous
  Country: JP (occurrence: JP)
  Receive Date: 20240220
  Receipt Date: 20240322
  Transmission Date: 20240410
  Serious: Yes (Life-Threatening, Hospitalization, Other)
  Sender: FDA-Public Use
  Company Number: JP-MACLEODS PHARMACEUTICALS US LTD-MAC2024045910

PATIENT

DRUGS (11)
  1. ESCITALOPRAM [Interacting]
     Active Substance: ESCITALOPRAM OXALATE
     Indication: Eating disorder
     Dosage: 5 MILLIGRAM
     Route: 065
  2. ESCITALOPRAM [Interacting]
     Active Substance: ESCITALOPRAM OXALATE
     Indication: Depression
  3. IBUPROFEN [Interacting]
     Active Substance: IBUPROFEN
     Indication: Product used for unknown indication
     Dosage: 1800 MILLIGRAM, SINGLE
     Route: 048
  4. ACETAMINOPHEN [Interacting]
     Active Substance: ACETAMINOPHEN
     Indication: Product used for unknown indication
     Dosage: 600 MILLIGRAM, SINGLE (ACETAMINOPHEN)
     Route: 048
  5. CAFFEINE [Interacting]
     Active Substance: CAFFEINE
     Indication: Product used for unknown indication
     Dosage: 950 MILLIGRAM, SINGLE (TOTAL)
     Route: 048
  6. DEXTROMETHORPHAN HYDROBROMIDE [Interacting]
     Active Substance: DEXTROMETHORPHAN HYDROBROMIDE
     Indication: Product used for unknown indication
     Dosage: 320 DOSAGE FORM, SINGLE
     Route: 048
  7. METHYLEPHEDRINE [Interacting]
     Active Substance: METHYLEPHEDRINE
     Indication: Product used for unknown indication
     Dosage: 400 MILLIGRAM, SINGLE
     Route: 048
  8. DIHYDROCODEINE PHOSPHATE [Interacting]
     Active Substance: DIHYDROCODEINE PHOSPHATE
     Indication: Product used for unknown indication
     Dosage: 150 MILLIGRAM, QD
     Route: 048
  9. CHLORPHENIRAMINE MALEATE [Interacting]
     Active Substance: CHLORPHENIRAMINE MALEATE
     Indication: Product used for unknown indication
     Dosage: 60 MILLIGRAM, SINGLE
     Route: 048
  10. LITHIUM [Concomitant]
     Active Substance: LITHIUM
     Indication: Eating disorder
     Dosage: 800 MILLIGRAM
     Route: 065
  11. LITHIUM [Concomitant]
     Active Substance: LITHIUM
     Indication: Depression

REACTIONS (7)
  - Toxic encephalopathy [Recovered/Resolved]
  - Serotonin syndrome [Recovered/Resolved]
  - Coma [Recovered/Resolved]
  - Electroencephalogram abnormal [Recovered/Resolved]
  - Suicide attempt [Unknown]
  - Drug interaction [Recovered/Resolved]
  - Overdose [Recovered/Resolved]
